FAERS Safety Report 18455602 (Version 1)
Quarter: 2020Q4

REPORT INFORMATION
  Report Type: Spontaneous
  Country: GB (occurrence: GB)
  Receive Date: 20201103
  Receipt Date: 20201103
  Transmission Date: 20210114
  Serious: Yes (Other)
  Sender: FDA-Public Use
  Company Number: GB-ALKEM LABORATORIES LIMITED-GB-ALKEM-2020-07385

PATIENT

DRUGS (2)
  1. PREDNISOLONE. [Concomitant]
     Active Substance: PREDNISOLONE
     Indication: PRODUCT USED FOR UNKNOWN INDICATION
     Dosage: 2 MILLIGRAM/KILOGRAM, QD(MAXIMUM DOSE UPTO 60MG/KG/QD)
     Route: 048
  2. AZATHIOPRINE. [Suspect]
     Active Substance: AZATHIOPRINE
     Indication: RASMUSSEN ENCEPHALITIS
     Dosage: 1.5 MILLIGRAM/KILOGRAM, QD
     Route: 048

REACTIONS (2)
  - Lower respiratory tract infection [Unknown]
  - Hypogammaglobulinaemia [Unknown]
